FAERS Safety Report 4635232-0 (Version None)
Quarter: 2005Q2

REPORT INFORMATION
  Report Type: 
  Country: None (occurrence: None)
  Receive Date: 20050411
  Receipt Date: 20050401
  Transmission Date: 20051028
  Serious: Yes (Death)
  Sender: FDA-Public Use
  Company Number: 2005-01-0661

PATIENT
  Age: 48 Year
  Sex: Male
  Weight: 77.1115 kg

DRUGS (4)
  1. PEG-INTRON [Suspect]
     Indication: HEPATITIS C
     Dosage: 1.5 MCG/KG/WK SUBCUTANEO
     Route: 058
     Dates: start: 20040908, end: 20050105
  2. REBETOL [Suspect]
     Indication: HEPATITIS C
     Dosage: SEE IMAGE
     Route: 048
     Dates: start: 20040908, end: 20050102
  3. REBETOL [Suspect]
     Indication: HEPATITIS C
     Dosage: SEE IMAGE
     Route: 048
     Dates: start: 20040908, end: 20050104
  4. REBETOL [Suspect]
     Indication: HEPATITIS C
     Dosage: SEE IMAGE
     Route: 048
     Dates: start: 20050104

REACTIONS (13)
  - AORTIC DISSECTION [None]
  - ARTERIOSCLEROSIS [None]
  - BACK PAIN [None]
  - CARDIAC TAMPONADE [None]
  - CELL DEATH [None]
  - HYPOAESTHESIA [None]
  - NAUSEA [None]
  - PERICARDIAL HAEMORRHAGE [None]
  - PULMONARY CONGESTION [None]
  - PULMONARY OEDEMA [None]
  - SPINAL OSTEOARTHRITIS [None]
  - TREATMENT NONCOMPLIANCE [None]
  - VOMITING [None]
